FAERS Safety Report 25396283 (Version 1)
Quarter: 2025Q2

REPORT INFORMATION
  Report Type: Spontaneous
  Country: US (occurrence: None)
  Receive Date: 20250603
  Receipt Date: 20250603
  Transmission Date: 20250716
  Serious: Yes (Hospitalization, Other)
  Sender: FDA-CTU
  Company Number: None

PATIENT
  Age: 26 Year
  Sex: Female
  Weight: 90 kg

DRUGS (6)
  1. EMGALITY [Suspect]
     Active Substance: GALCANEZUMAB-GNLM
     Indication: Migraine
     Route: 058
     Dates: start: 20250406, end: 20250504
  2. PROPRANOLOL [Concomitant]
     Active Substance: PROPRANOLOL HYDROCHLORIDE
  3. PREGABALIN [Concomitant]
     Active Substance: PREGABALIN
  4. RIMEGEPANT [Concomitant]
     Active Substance: RIMEGEPANT
  5. FINASTERIDE [Concomitant]
     Active Substance: FINASTERIDE
  6. MELATONIN [Concomitant]
     Active Substance: MELATONIN

REACTIONS (5)
  - Diarrhoea [None]
  - Gastritis [None]
  - Gastric haemorrhage [None]
  - Gastrooesophageal reflux disease [None]
  - Impaired gastric emptying [None]

NARRATIVE: CASE EVENT DATE: 20250406
